FAERS Safety Report 8786011 (Version 1)
Quarter: 2012Q4

REPORT INFORMATION
  Report Type: Report from Study
  Country: US (occurrence: US)
  Receive Date: 20120914
  Receipt Date: 20120914
  Transmission Date: 20130627
  Serious: Yes (Other)
  Sender: FDA-Public Use
  Company Number: US-VERTEX PHARMACEUTICAL INC.-AE-2012-011631

PATIENT
  Sex: Male
  Weight: 83.9 kg

DRUGS (8)
  1. INCIVEK [Suspect]
     Indication: HEPATITIS C
     Route: 048
     Dates: start: 2012, end: 20120802
  2. PEGASYS [Concomitant]
     Indication: HEPATITIS C
     Route: 058
     Dates: start: 2012, end: 20120802
  3. RIBASPHERE [Concomitant]
     Indication: HEPATITIS C
     Dates: start: 2012, end: 20120802
  4. PROPRANOLOL [Concomitant]
  5. LEXAPRO [Concomitant]
  6. REQUIP [Concomitant]
  7. LOSARTAN-HCTZ [Concomitant]
  8. PRANDIN [Concomitant]

REACTIONS (2)
  - Anaemia [Unknown]
  - Fatigue [Unknown]
